FAERS Safety Report 18691713 (Version 3)
Quarter: 2021Q1

REPORT INFORMATION
  Report Type: Report from Study
  Country: JP (occurrence: JP)
  Receive Date: 20210102
  Receipt Date: 20210222
  Transmission Date: 20210419
  Serious: Yes (Other)
  Sender: FDA-Public Use
  Company Number: JP-CELLTRION INC.-2020JP021149

PATIENT

DRUGS (54)
  1. CT?P6 [Suspect]
     Active Substance: INVESTIGATIONAL BIOSIMILARS
     Dosage: 335 MILLIGRAM, QD
     Route: 041
     Dates: start: 20191220, end: 20191220
  2. CT?P6 [Suspect]
     Active Substance: INVESTIGATIONAL BIOSIMILARS
     Dosage: 350 MILLIGRAM, QD
     Route: 041
     Dates: start: 20200117, end: 20200117
  3. CISPLATIN. [Suspect]
     Active Substance: CISPLATIN
     Indication: HER2 POSITIVE GASTRIC CANCER
     Dosage: 96 MG, QD
     Route: 065
     Dates: start: 20191011
  4. CISPLATIN. [Suspect]
     Active Substance: CISPLATIN
     Dosage: 70 MILLIGRAM
     Route: 065
     Dates: start: 20200313, end: 20200313
  5. TEGAFUR,GIMERACIL AND OTERACIL POTASSIUM [Suspect]
     Active Substance: GIMERACIL\OTERACIL\TEGAFUR
     Dosage: 100 MG, QD
     Route: 065
     Dates: start: 20200117, end: 20200131
  6. PACLITAXEL. [Concomitant]
     Active Substance: PACLITAXEL
     Indication: HER2 POSITIVE GASTRIC CANCER
     Dosage: UNK
     Dates: start: 20200727
  7. CT?P6 [Suspect]
     Active Substance: INVESTIGATIONAL BIOSIMILARS
     Dosage: 350 MILLIGRAM, QD
     Route: 041
     Dates: start: 20200313, end: 20200313
  8. CISPLATIN. [Suspect]
     Active Substance: CISPLATIN
     Dosage: 70 MILLIGRAM
     Route: 065
     Dates: start: 20200214, end: 20200214
  9. DECADRON [Concomitant]
     Active Substance: DEXAMETHASONE
     Dosage: UNK
     Route: 065
     Dates: start: 20191012, end: 20200316
  10. DEXART [Concomitant]
     Active Substance: DEXAMETHASONE SODIUM PHOSPHATE
     Indication: PRODUCT USED FOR UNKNOWN INDICATION
     Dosage: UNK
     Route: 065
  11. MANNITOL. [Concomitant]
     Active Substance: MANNITOL
     Indication: RENAL DISORDER PROPHYLAXIS
     Dosage: UNK
     Route: 065
     Dates: start: 20191011, end: 20200314
  12. ZOLPIDEM TARTRATE. [Concomitant]
     Active Substance: ZOLPIDEM TARTRATE
     Indication: INSOMNIA
     Dosage: UNK
  13. HANGESHASHINTO [COPTIS SPP. RHIZOME;GLYCYRRHIZA SPP. ROOT;PANAX GINSEN [Concomitant]
     Active Substance: HERBALS
     Indication: PROPHYLAXIS
     Dosage: UNK
     Dates: start: 20191011
  14. HIRUDOID [Concomitant]
     Active Substance: GLYCOSAMINOGLYCANS
     Indication: DERMATOMYOSITIS
     Dosage: UNK
     Route: 065
  15. CT?P6 [Suspect]
     Active Substance: INVESTIGATIONAL BIOSIMILARS
     Dosage: 335 MILLIGRAM, QD
     Route: 041
     Dates: start: 20191101, end: 20191101
  16. CT?P6 [Suspect]
     Active Substance: INVESTIGATIONAL BIOSIMILARS
     Dosage: 350 MILLIGRAM, QD
     Route: 041
     Dates: start: 20200417, end: 20200417
  17. CISPLATIN. [Suspect]
     Active Substance: CISPLATIN
     Dosage: 70 MILLIGRAM
     Route: 065
     Dates: start: 20200117, end: 20200117
  18. TEGAFUR,GIMERACIL AND OTERACIL POTASSIUM [Suspect]
     Active Substance: GIMERACIL\OTERACIL\TEGAFUR
     Dosage: 100 MG, QD
     Route: 065
     Dates: start: 20200214, end: 20200228
  19. AMLODIPINE [Concomitant]
     Active Substance: AMLODIPINE BESYLATE
     Indication: HYPERTENSION
     Dosage: UNK
     Route: 065
  20. LASIX [Concomitant]
     Active Substance: FUROSEMIDE
     Indication: DIURETIC THERAPY
  21. RESTAMIN KOWA [Concomitant]
     Indication: PROPHYLAXIS
  22. CT?P6 [Suspect]
     Active Substance: INVESTIGATIONAL BIOSIMILARS
     Dosage: 335 MILLIGRAM, QD
     Route: 041
     Dates: start: 20191122, end: 20191122
  23. CISPLATIN. [Suspect]
     Active Substance: CISPLATIN
     Dosage: 68 MG, QD
     Route: 065
     Dates: start: 20191101
  24. CISPLATIN. [Suspect]
     Active Substance: CISPLATIN
     Dosage: 68 MG, QD
     Route: 065
     Dates: start: 20191122
  25. PRIMPERAN [Concomitant]
     Active Substance: METOCLOPRAMIDE HYDROCHLORIDE
     Indication: PROPHYLAXIS OF NAUSEA AND VOMITING
     Dosage: UNK
     Route: 065
  26. OLANZAPINE. [Concomitant]
     Active Substance: OLANZAPINE
     Dosage: UNK
     Dates: start: 20191011
  27. NEXIUM I.V. [Concomitant]
     Active Substance: ESOMEPRAZOLE SODIUM
     Indication: GASTRIC ULCER
     Dosage: UNK
  28. LASIX [Concomitant]
     Active Substance: FUROSEMIDE
     Indication: DYSLIPIDAEMIA
     Dosage: 20 ? 60 MG
     Dates: start: 20191103
  29. DIQUAS [Concomitant]
     Active Substance: DIQUAFOSOL TETRASODIUM
     Indication: DRY EYE
     Dosage: UNK
  30. RESTAMIN KOWA [Concomitant]
     Indication: PREMEDICATION
     Dosage: UNK
     Dates: start: 20200727
  31. FAMOTIDINE. [Concomitant]
     Active Substance: FAMOTIDINE
     Indication: PREMEDICATION
     Dosage: UNK
     Dates: start: 20200727
  32. FAMOTIDINE. [Concomitant]
     Active Substance: FAMOTIDINE
     Indication: PROPHYLAXIS
  33. TEGAFUR,GIMERACIL AND OTERACIL POTASSIUM [Suspect]
     Active Substance: GIMERACIL\OTERACIL\TEGAFUR
     Dosage: 100 MG, QD
     Route: 065
     Dates: start: 20191101, end: 20191115
  34. TEGAFUR,GIMERACIL AND OTERACIL POTASSIUM [Suspect]
     Active Substance: GIMERACIL\OTERACIL\TEGAFUR
     Dosage: 100 MG, QD
     Route: 065
     Dates: start: 20191122, end: 20191206
  35. TEGAFUR,GIMERACIL AND OTERACIL POTASSIUM [Suspect]
     Active Substance: GIMERACIL\OTERACIL\TEGAFUR
     Dosage: 100 MG, QD
     Route: 065
     Dates: start: 20200313, end: 20200327
  36. EMEND [Concomitant]
     Active Substance: APREPITANT
     Indication: PRODUCT USED FOR UNKNOWN INDICATION
     Dosage: UNK
     Route: 065
     Dates: start: 20191011, end: 20200316
  37. GRANISETRON [Concomitant]
     Active Substance: GRANISETRON
     Indication: PROPHYLAXIS OF NAUSEA AND VOMITING
     Dosage: UNK, STOP DATE: 14 MAR 2020
     Route: 065
  38. FEXOFENADINE HYDROCHLORIDE. [Concomitant]
     Active Substance: FEXOFENADINE HYDROCHLORIDE
     Indication: DERMATOMYOSITIS
     Dosage: UNK; STOP DATE: 30 JAN 2020
  39. RISEDRONATE NA [Concomitant]
     Active Substance: RISEDRONATE SODIUM
     Indication: STEROID DIABETES
     Dosage: UNK
  40. OLOPATADINE HYDROCHLORIDE. [Concomitant]
     Active Substance: OLOPATADINE HYDROCHLORIDE
     Indication: DERMATOMYOSITIS
     Dosage: UNK
     Dates: start: 20200116
  41. CISPLATIN. [Suspect]
     Active Substance: CISPLATIN
     Dosage: 68 MG, QD
     Route: 065
     Dates: start: 20191220
  42. PREDNISOLONE. [Suspect]
     Active Substance: PREDNISOLONE
     Indication: DERMATOMYOSITIS
     Dosage: 6 MG, QD, SINCE BEFORE THE INITIATION OF THE STUDY
     Route: 065
  43. PITAVASTATIN CALCIUM HYDRATE [Concomitant]
     Indication: DYSLIPIDAEMIA
     Dosage: UNK
  44. CT?P6 [Suspect]
     Active Substance: INVESTIGATIONAL BIOSIMILARS
     Indication: HER2 POSITIVE GASTRIC CANCER
     Dosage: 488 MILLIGRAM, QD
     Route: 041
     Dates: start: 20191011, end: 20191011
  45. CT?P6 [Suspect]
     Active Substance: INVESTIGATIONAL BIOSIMILARS
     Dosage: 350 MILLIGRAM, QD
     Route: 041
     Dates: start: 20200214, end: 20200214
  46. TEGAFUR,GIMERACIL AND OTERACIL POTASSIUM [Suspect]
     Active Substance: GIMERACIL\OTERACIL\TEGAFUR
     Indication: HER2 POSITIVE GASTRIC CANCER
     Dosage: 120 MG, QD
     Route: 065
     Dates: start: 20191011, end: 20191025
  47. MAGNESIUM SULFATE HYDRATE [Concomitant]
     Active Substance: MAGNESIUM SULFATE HEPTAHYDRATE
     Dosage: UNK
     Route: 065
     Dates: start: 20191011, end: 20200314
  48. BAKTAR [Concomitant]
     Active Substance: SULFAMETHOXAZOLE\TRIMETHOPRIM
     Indication: DERMATOMYOSITIS
     Dosage: UNK
  49. CT?P6 [Suspect]
     Active Substance: INVESTIGATIONAL BIOSIMILARS
     Dosage: 350 MILLIGRAM, QD
     Route: 041
     Dates: start: 20200518, end: 20200518
  50. TEGAFUR,GIMERACIL AND OTERACIL POTASSIUM [Suspect]
     Active Substance: GIMERACIL\OTERACIL\TEGAFUR
     Dosage: 100 MG, QD
     Route: 065
     Dates: start: 20191220, end: 20200103
  51. TEGAFUR,GIMERACIL AND OTERACIL POTASSIUM [Suspect]
     Active Substance: GIMERACIL\OTERACIL\TEGAFUR
     Dosage: 80 MG, QD
     Route: 065
     Dates: start: 20200518, end: 20200601
  52. SODIUM CHLORIDE. [Concomitant]
     Active Substance: SODIUM CHLORIDE
     Indication: PROPHYLAXIS
     Dosage: UNK
     Route: 065
     Dates: start: 20191011, end: 20200314
  53. ANTEBATE [Concomitant]
     Active Substance: BETAMETHASONE DIPROPIONATE
     Route: 065
  54. XARELTO [Concomitant]
     Active Substance: RIVAROXABAN
     Indication: PROPHYLAXIS
     Dosage: UNK
     Dates: start: 20200325

REACTIONS (20)
  - Embolism [Recovered/Resolved]
  - Infusion related reaction [Recovered/Resolved]
  - Gamma-glutamyltransferase increased [Recovered/Resolved]
  - Weight increased [Not Recovered/Not Resolved]
  - Gingivitis [Recovered/Resolved]
  - Pleural effusion [Recovering/Resolving]
  - Peripheral sensory neuropathy [Not Recovered/Not Resolved]
  - Oedema peripheral [Not Recovered/Not Resolved]
  - Thermal burn [Recovered/Resolved]
  - Alanine aminotransferase increased [Recovered/Resolved]
  - Blood creatinine increased [Not Recovered/Not Resolved]
  - Off label use [Unknown]
  - Pigmentation disorder [Unknown]
  - Blood creatinine increased [Recovered/Resolved]
  - Oedema [Recovered/Resolved]
  - Dyspnoea [Recovering/Resolving]
  - Underdose [Unknown]
  - Anaemia [Recovered/Resolved]
  - Overdose [Unknown]
  - Product use issue [Unknown]

NARRATIVE: CASE EVENT DATE: 20191011
